FAERS Safety Report 18315963 (Version 3)
Quarter: 2023Q2

REPORT INFORMATION
  Report Type: Other
  Country: CA (occurrence: CA)
  Receive Date: 20200927
  Receipt Date: 20230518
  Transmission Date: 20230722
  Serious: Yes (Other)
  Sender: FDA-Public Use
  Company Number: CA-CELLTRION INC.-2020CA026962

PATIENT

DRUGS (26)
  1. RITUXIMAB [Suspect]
     Active Substance: RITUXIMAB
     Indication: Rheumatoid arthritis
     Dosage: 1000.0 MILLIGRAM
     Route: 042
  2. BISOPROLOL [Concomitant]
     Active Substance: BISOPROLOL
  3. CARBIDOPA\LEVODOPA [Concomitant]
     Active Substance: CARBIDOPA\LEVODOPA
  4. CARBIDOPA\LEVODOPA [Concomitant]
     Active Substance: CARBIDOPA\LEVODOPA
  5. DIPHENHYDRAMINE HYDROCHLORIDE [Concomitant]
     Active Substance: DIPHENHYDRAMINE HYDROCHLORIDE
     Indication: Premedication
     Dosage: 50.0 MILLIGRAM
     Route: 048
  6. DOCUSATE SODIUM [Concomitant]
     Active Substance: DOCUSATE SODIUM
  7. DOXYCYCLINE [Concomitant]
     Active Substance: DOXYCYCLINE
     Route: 065
  8. LEVOTHYROXINE [Concomitant]
     Active Substance: LEVOTHYROXINE
  9. FLECAINIDE [Concomitant]
     Active Substance: FLECAINIDE
  10. FOLIC ACID [Concomitant]
     Active Substance: FOLIC ACID
  11. HYDROXYCHLOROQUINE SULFATE [Concomitant]
     Active Substance: HYDROXYCHLOROQUINE SULFATE
  12. LACTULOSE [Concomitant]
     Active Substance: LACTULOSE
     Route: 065
  13. METHOTREXATE [Concomitant]
     Active Substance: METHOTREXATE
     Route: 048
  14. METHYLPREDNISOLONE [Concomitant]
     Active Substance: METHYLPREDNISOLONE
     Indication: Premedication
     Dosage: 100.0 MILLIGRAM
     Route: 042
  15. METOPROLOL [Concomitant]
     Active Substance: METOPROLOL
  16. OXYCODONE [Concomitant]
     Active Substance: OXYCODONE
  17. OXYCODONE [Concomitant]
     Active Substance: OXYCODONE
  18. PANTOPRAZOLE [Concomitant]
     Active Substance: PANTOPRAZOLE
  19. PAROXETINE [Concomitant]
     Active Substance: PAROXETINE
  20. PAROXETINE HYDROCHLORIDE [Concomitant]
     Active Substance: PAROXETINE HYDROCHLORIDE
  21. RISEDRONATE SODIUM [Concomitant]
     Active Substance: RISEDRONATE SODIUM
  22. ROSUVASTATIN [Concomitant]
     Active Substance: ROSUVASTATIN
     Route: 058
  23. SPIRONOLACTONE [Concomitant]
     Active Substance: SPIRONOLACTONE
  24. SPIRONOLACTONE [Concomitant]
     Active Substance: SPIRONOLACTONE
  25. WARFARIN [Concomitant]
     Active Substance: WARFARIN
  26. VITAMIN C [Concomitant]
     Active Substance: ASCORBIC ACID

REACTIONS (13)
  - Arthritis [Not Recovered/Not Resolved]
  - Blood pressure diastolic abnormal [Not Recovered/Not Resolved]
  - Blood pressure diastolic decreased [Not Recovered/Not Resolved]
  - Blood pressure systolic abnormal [Not Recovered/Not Resolved]
  - Body temperature decreased [Not Recovered/Not Resolved]
  - Feeling abnormal [Not Recovered/Not Resolved]
  - Heart rate decreased [Not Recovered/Not Resolved]
  - Insomnia [Not Recovered/Not Resolved]
  - Oxygen saturation decreased [Not Recovered/Not Resolved]
  - Parkinson^s disease [Not Recovered/Not Resolved]
  - Hypotension [Not Recovered/Not Resolved]
  - Bronchitis [Not Recovered/Not Resolved]
  - Nasopharyngitis [Not Recovered/Not Resolved]
